FAERS Safety Report 6611838-4 (Version None)
Quarter: 2010Q1

REPORT INFORMATION
  Report Type: 
  Country: None (occurrence: None)
  Receive Date: 20100303
  Receipt Date: 20100216
  Transmission Date: 20100710
  Serious: Yes (Other)
  Sender: FDA-Public Use
  Company Number: US-ROCHE-687701

PATIENT
  Age: 78 Year
  Sex: Female

DRUGS (5)
  1. AVASTIN [Suspect]
     Indication: COLORECTAL CANCER
     Route: 042
     Dates: start: 20081101, end: 20091101
  2. FOLFOX REGIMEN [Suspect]
     Indication: COLORECTAL CANCER
     Route: 065
     Dates: start: 20081101, end: 20091101
  3. XELODA [Concomitant]
  4. ERBITUX [Concomitant]
  5. IRINOTECAN HCL [Concomitant]

REACTIONS (1)
  - RETINAL DETACHMENT [None]
